FAERS Safety Report 8444716-9 (Version None)
Quarter: 2012Q2

REPORT INFORMATION
  Report Type: 
  Country: None (occurrence: None)
  Receive Date: 20120611
  Receipt Date: 20120530
  Transmission Date: 20120825
  Serious: Yes (Other)
  Sender: FDA-Public Use
  Company Number: ACO_30550_2012

PATIENT
  Age: 77 Year
  Sex: Female

DRUGS (3)
  1. PREDNISONE TAB [Concomitant]
  2. ALL OTHER THERAPEUTIC PRODUCTS [Concomitant]
  3. AMPYRA [Suspect]
     Indication: PRODUCT USED FOR UNKNOWN INDICATION
     Dosage: 10 MG, BID
     Dates: end: 20120602

REACTIONS (6)
  - FALL [None]
  - TREMOR [None]
  - CONVULSION [None]
  - PALPITATIONS [None]
  - URINARY TRACT INFECTION [None]
  - NERVOUSNESS [None]
